FAERS Safety Report 5453614-4 (Version None)
Quarter: 2007Q3

REPORT INFORMATION
  Report Type: 
  Country: None (occurrence: None)
  Receive Date: 20070917
  Receipt Date: 20070910
  Transmission Date: 20080115
  Serious: Yes (Other)
  Sender: FDA-Public Use
  Company Number: PHEH2007US12150

PATIENT
  Sex: Female

DRUGS (2)
  1. LOTENSIN [Suspect]
     Indication: HYPERTENSION
     Dosage: 20 MG, UNK
     Route: 048
  2. LOTREL [Suspect]
     Indication: HYPERTENSION
     Dosage: 10/20 MG, UNK
     Route: 048
     Dates: start: 20040101

REACTIONS (2)
  - DIZZINESS [None]
  - PRESYNCOPE [None]
